FAERS Safety Report 15982173 (Version 3)
Quarter: 2019Q1

REPORT INFORMATION
  Report Type: Spontaneous
  Country: HU (occurrence: HU)
  Receive Date: 20190219
  Receipt Date: 20190227
  Transmission Date: 20190418
  Serious: Yes (Other)
  Sender: FDA-Public Use
  Company Number: HU-PFIZER INC-2019070287

PATIENT
  Age: 69 Year
  Sex: Female

DRUGS (12)
  1. EUTHYROX [Concomitant]
     Active Substance: LEVOTHYROXINE SODIUM
     Dosage: 50 UG, UNK
  2. ASA PROTECT [Concomitant]
     Dosage: UNK
  3. BISOPROLOL SANDOZ [Concomitant]
     Active Substance: BISOPROLOL
     Dosage: 0.5 DF, (5 MG 1X1/2)
  4. IBRANCE [Suspect]
     Active Substance: PALBOCICLIB
     Indication: BREAST CANCER METASTATIC
     Dosage: 125 MG, CYCLIC (ONCE DAILY THROUGH 21 DAYS THEN 1 WEEK BREAK)
     Dates: start: 20181018
  5. FASLODEX [Suspect]
     Active Substance: FULVESTRANT
     Indication: BREAST CANCER METASTATIC
     Dosage: 500 MG, UNK
     Dates: start: 20190130
  6. FRONTIN [Concomitant]
     Active Substance: ALPRAZOLAM
     Dosage: 0.5 DF, (HALF TABLET IN THE EVENING)
  7. COVEREX AS KOMB [Concomitant]
     Dosage: UNK, 1X/DAY
  8. AMILORID [Concomitant]
     Dosage: WEEKLY 3X
  9. COVEREX AS [Concomitant]
     Active Substance: PERINDOPRIL ARGININE
     Dosage: 5 IN THE EVENING
  10. BONESSA [Suspect]
     Active Substance: IBANDRONATE SODIUM
     Indication: BREAST CANCER METASTATIC
     Dosage: 6 MG, UNK
     Dates: start: 20190130
  11. LETROZOLE. [Concomitant]
     Active Substance: LETROZOLE
     Indication: ENDOCRINE DISORDER
     Dosage: UNK
  12. ATORIS [Concomitant]
     Active Substance: ATORVASTATIN CALCIUM
     Dosage: UNK

REACTIONS (3)
  - Neutropenia [Unknown]
  - Syncope [Unknown]
  - Abdominal discomfort [Recovered/Resolved]
